FAERS Safety Report 5374626-5 (Version None)
Quarter: 2007Q2

REPORT INFORMATION
  Report Type: 
  Country: None (occurrence: None)
  Receive Date: 20070627
  Receipt Date: 20070409
  Transmission Date: 20071010
  Serious: Yes (Death)
  Sender: FDA-Public Use
  Company Number: 491919

PATIENT
  Age: 60 Year
  Sex: Female

DRUGS (2)
  1. XELODA [Suspect]
  2. MULTIPLE UNSPECIFIED MEDICATIONS      (GENERIC UNKNOWN) [Concomitant]

REACTIONS (1)
  - BREAST CANCER [None]
